FAERS Safety Report 8234546-5 (Version None)
Quarter: 2012Q1

REPORT INFORMATION
  Report Type: 
  Country: None (occurrence: None)
  Receive Date: 20120322
  Receipt Date: 20120309
  Transmission Date: 20120608
  Serious: Yes (Hospitalization)
  Sender: FDA-Public Use
  Company Number: 2011SP045497

PATIENT
  Age: 83 Year
  Sex: Male

DRUGS (9)
  1. ENALAPRIL MALEATE [Concomitant]
  2. EFFEXOR [Suspect]
     Indication: ANXIETY
     Dosage: 150 MG; QD; PO
     Route: 048
     Dates: start: 20110524, end: 20110624
  3. ASPIRIN [Concomitant]
  4. NOVARAPID [Concomitant]
  5. REMERON [Suspect]
     Indication: DEPRESSION
     Dosage: 15 MG; QD; PO
     Route: 048
     Dates: start: 20110524, end: 20110624
  6. OMEPRAZOLE [Concomitant]
  7. LEVEMIR [Concomitant]
  8. FLURAZEPAM HCL [Suspect]
     Indication: ANXIETY
     Dosage: 15 MG; QD; PO
     Route: 048
     Dates: start: 20110524, end: 20110624
  9. LASIX [Concomitant]

REACTIONS (5)
  - ATAXIA [None]
  - NAUSEA [None]
  - BALANCE DISORDER [None]
  - HEADACHE [None]
  - HYPERKALAEMIA [None]
